FAERS Safety Report 11168143 (Version 1)
Quarter: 2015Q2

REPORT INFORMATION
  Report Type: Spontaneous
  Country: US (occurrence: None)
  Receive Date: 20150604
  Receipt Date: 20150604
  Transmission Date: 20150821
  Serious: Yes (Disabling)
  Sender: FDA-Public Use
  Company Number: None

PATIENT
  Age: 57 Year
  Sex: Female
  Weight: 184 kg

DRUGS (6)
  1. CLONAZEPAM. [Concomitant]
     Active Substance: CLONAZEPAM
  2. MELOXICAM. [Concomitant]
     Active Substance: MELOXICAM
  3. ADVIL [Concomitant]
     Active Substance: IBUPROFEN
  4. ONE DAY FRUIT CHEW VITAMIN [Concomitant]
  5. VITAMIN D [Concomitant]
     Active Substance: CHOLECALCIFEROL
  6. ABILIFY [Suspect]
     Active Substance: ARIPIPRAZOLE
     Indication: DEPRESSION
     Dosage: SEVEAL MONTHS
     Route: 048

REACTIONS (4)
  - Tongue movement disturbance [None]
  - Drug ineffective [None]
  - Glossodynia [None]
  - Tongue discolouration [None]

NARRATIVE: CASE EVENT DATE: 20140506
